FAERS Safety Report 7889356-5 (Version None)
Quarter: 2011Q4

REPORT INFORMATION
  Report Type: 
  Country: None (occurrence: None)
  Receive Date: 20111103
  Receipt Date: 20111021
  Transmission Date: 20120403
  Serious: Yes (Death)
  Sender: FDA-Public Use
  Company Number: US-RB-029087-11

PATIENT
  Sex: Male

DRUGS (1)
  1. MUCINEX CHILD EXPECTORANT / COUGH CHERRY [Suspect]
     Indication: NASOPHARYNGITIS
     Dosage: 2 TIMES A DAY AMOUNT UNKNOWN.
     Route: 048

REACTIONS (9)
  - LETHARGY [None]
  - ACCIDENTAL DRUG INTAKE BY CHILD [None]
  - FATIGUE [None]
  - UNRESPONSIVE TO STIMULI [None]
  - FEELING COLD [None]
  - MALAISE [None]
  - CONVULSION [None]
  - HEADACHE [None]
  - BRAIN INJURY [None]
